FAERS Safety Report 25495043 (Version 1)
Quarter: 2025Q2

REPORT INFORMATION
  Report Type: Spontaneous
  Country: AU (occurrence: AU)
  Receive Date: 20250630
  Receipt Date: 20250630
  Transmission Date: 20250717
  Serious: Yes (Hospitalization)
  Sender: MYLAN
  Company Number: AU-MYLANLABS-2025M1052985

PATIENT
  Sex: Male

DRUGS (2)
  1. CLOZARIL [Suspect]
     Active Substance: CLOZAPINE
     Indication: Schizophrenia
  2. CLOZARIL [Suspect]
     Active Substance: CLOZAPINE

REACTIONS (2)
  - Heart rate increased [Unknown]
  - Chest pain [Unknown]

NARRATIVE: CASE EVENT DATE: 20250101
